FAERS Safety Report 18346888 (Version 4)
Quarter: 2020Q4

REPORT INFORMATION
  Report Type: Spontaneous
  Country: PT (occurrence: PT)
  Receive Date: 20201006
  Receipt Date: 20201224
  Transmission Date: 20210114
  Serious: Yes (Other)
  Sender: FDA-Public Use
  Company Number: PT-AUROBINDO-AUR-APL-2020-050503

PATIENT
  Age: 83 Year
  Sex: Male

DRUGS (1)
  1. DULOXETINE GASTRO-RESISTANT CAPSULES [Suspect]
     Active Substance: DULOXETINE
     Indication: NERVOUS SYSTEM DISORDER
     Dosage: 30 MILLIGRAM, ONCE A DAY
     Route: 048
     Dates: start: 202001, end: 20200916

REACTIONS (1)
  - Blood creatinine increased [Unknown]

NARRATIVE: CASE EVENT DATE: 20200515
